FAERS Safety Report 18131243 (Version 3)
Quarter: 2021Q3

REPORT INFORMATION
  Report Type: Spontaneous
  Country: US (occurrence: US)
  Receive Date: 20200810
  Receipt Date: 20210819
  Transmission Date: 20211014
  Serious: No
  Sender: FDA-Public Use
  Company Number: US-PFIZER INC-2020303704

PATIENT
  Sex: Female

DRUGS (1)
  1. IBRANCE [Suspect]
     Active Substance: PALBOCICLIB
     Dosage: UNK UNK, DAILY (HAVE TO TAKE THESE TABLETS EVERY DAY)

REACTIONS (3)
  - Fatigue [Unknown]
  - Illness [Unknown]
  - Alopecia [Unknown]
